FAERS Safety Report 6094165-6 (Version None)
Quarter: 2009Q1

REPORT INFORMATION
  Report Type: 
  Country: None (occurrence: None)
  Receive Date: 20090226
  Receipt Date: 20090220
  Transmission Date: 20090719
  Serious: Yes (Other)
  Sender: FDA-Public Use
  Company Number: US-MERCK-0812USA03353

PATIENT
  Age: 22 Year
  Sex: Male

DRUGS (4)
  1. IVEMEND [Suspect]
     Indication: PROPHYLAXIS OF NAUSEA AND VOMITING
     Route: 041
     Dates: start: 20081216, end: 20081216
  2. KYTRIL [Concomitant]
     Route: 065
  3. TYLENOL [Concomitant]
     Route: 065
  4. BENADRYL [Concomitant]
     Route: 065

REACTIONS (6)
  - CHEST DISCOMFORT [None]
  - DYSPNOEA [None]
  - FLUSHING [None]
  - HYPERHIDROSIS [None]
  - HYPOXIA [None]
  - SPEECH DISORDER [None]
